FAERS Safety Report 21604931 (Version 2)
Quarter: 2022Q4

REPORT INFORMATION
  Report Type: Spontaneous
  Country: US (occurrence: US)
  Receive Date: 20221116
  Receipt Date: 20221124
  Transmission Date: 20230113
  Serious: No
  Sender: FDA-Public Use
  Company Number: US-SANOFI-01358104

PATIENT
  Sex: Female

DRUGS (3)
  1. TOUJEO MAX [Suspect]
     Active Substance: INSULIN GLARGINE
     Indication: Type 2 diabetes mellitus
     Dosage: 55 IU, HS, 55 UNITS HS AND DRUG TREATMENT DURATION:2 MONTHS
     Dates: start: 202209, end: 20221103
  2. HUMALOG [Concomitant]
     Active Substance: INSULIN LISPRO
     Dosage: UNK
  3. LANTUS [Concomitant]
     Active Substance: INSULIN GLARGINE
     Dosage: UNK
     Dates: start: 20221104

REACTIONS (7)
  - Headache [Recovering/Resolving]
  - Nausea [Recovering/Resolving]
  - Weight increased [Recovering/Resolving]
  - Peripheral swelling [Recovering/Resolving]
  - Blood glucose increased [Recovering/Resolving]
  - Glycosylated haemoglobin increased [Recovering/Resolving]
  - Drug ineffective [Unknown]

NARRATIVE: CASE EVENT DATE: 20220101
